FAERS Safety Report 9694003 (Version 1)
Quarter: 2013Q4

REPORT INFORMATION
  Report Type: Spontaneous
  Country: US (occurrence: US)
  Receive Date: 20131118
  Receipt Date: 20131118
  Transmission Date: 20140711
  Serious: Yes (Death, Hospitalization, Other)
  Sender: FDA-Public Use
  Company Number: US-BAXTER-2013BAX044595

PATIENT
  Sex: Female

DRUGS (11)
  1. DIANEAL LOW CALCIUM [Suspect]
     Indication: PERITONEAL DIALYSIS
     Route: 033
     Dates: start: 20101213
  2. DIANEAL LOW CALCIUM [Suspect]
     Route: 033
     Dates: end: 20131107
  3. DIANEAL LOW CALCIUM [Suspect]
     Indication: PERITONEAL DIALYSIS
     Route: 033
     Dates: start: 20101213
  4. DIANEAL LOW CALCIUM [Suspect]
     Route: 033
     Dates: end: 20131107
  5. HYDROCODONE [Concomitant]
     Indication: NECK PAIN
     Route: 048
  6. HYDROCODONE [Concomitant]
     Indication: BACK PAIN
  7. FLEXERIL [Concomitant]
     Indication: NECK PAIN
     Route: 048
  8. FLEXERIL [Concomitant]
     Indication: BACK PAIN
  9. KEPPRA [Concomitant]
     Indication: CONVULSION
     Route: 048
  10. MORPHINE SULFATE [Concomitant]
     Indication: NECK PAIN
     Route: 048
  11. MORPHINE SULFATE [Concomitant]
     Indication: BACK PAIN

REACTIONS (8)
  - Cardio-respiratory arrest [Fatal]
  - Cardiac valve disease [Unknown]
  - Cerebrovascular accident [Unknown]
  - Convulsion [Unknown]
  - Peritonitis [Not Recovered/Not Resolved]
  - Catheter site erythema [Recovering/Resolving]
  - Peritoneal dialysis complication [Unknown]
  - Condition aggravated [Unknown]
